FAERS Safety Report 7879500-8 (Version None)
Quarter: 2011Q4

REPORT INFORMATION
  Report Type: 
  Country: None (occurrence: None)
  Receive Date: 20111101
  Receipt Date: 20110511
  Transmission Date: 20120403
  Serious: No
  Sender: FDA-Public Use
  Company Number: US-ABBOTT-11P-163-0725500-00

PATIENT
  Age: 72 Year
  Sex: Female
  Weight: 68.1 kg

DRUGS (2)
  1. BIAXIN [Suspect]
     Indication: SINUSITIS
     Dates: start: 20110216, end: 20110218
  2. BIAXIN [Suspect]
     Indication: BRONCHITIS

REACTIONS (5)
  - NAUSEA [None]
  - DEPRESSION [None]
  - ANOSMIA [None]
  - PRODUCT TASTE ABNORMAL [None]
  - AGEUSIA [None]
